FAERS Safety Report 11231128 (Version 3)
Quarter: 2015Q4

REPORT INFORMATION
  Report Type: Not Available
  Country: FR (occurrence: FR)
  Receive Date: 20150701
  Receipt Date: 20151125
  Transmission Date: 20160304
  Serious: Yes (Hospitalization)
  Sender: FDA-Public Use
  Company Number: FR-BEH-2015051993

PATIENT
  Age: 87 Year
  Sex: Female

DRUGS (10)
  1. PRIVIGEN [Suspect]
     Active Substance: HUMAN IMMUNOGLOBULIN G
  2. RAMIPRIL. [Concomitant]
     Active Substance: RAMIPRIL
  3. TAHOR [Concomitant]
     Active Substance: ATORVASTATIN CALCIUM
  4. PREVISCAN [Concomitant]
     Active Substance: FLUINDIONE
  5. SEROPRAM [Concomitant]
     Active Substance: CITALOPRAM HYDROBROMIDE
  6. PRIVIGEN [Suspect]
     Active Substance: HUMAN IMMUNOGLOBULIN G
     Indication: DEMYELINATING POLYNEUROPATHY
     Dosage: 1ST COURSE
     Route: 042
     Dates: start: 20150417, end: 20150419
  7. PRIVIGEN [Suspect]
     Active Substance: HUMAN IMMUNOGLOBULIN G
     Dosage: 1 IN 1 INTAKEN, 2ND COURSE FROM 01- TO 03-JUN-2015
     Route: 042
     Dates: start: 20150601, end: 20150601
  8. PRIVIGEN [Suspect]
     Active Substance: HUMAN IMMUNOGLOBULIN G
  9. PLAVIX [Concomitant]
     Active Substance: CLOPIDOGREL BISULFATE
  10. INEXIUM [Concomitant]
     Active Substance: ESOMEPRAZOLE

REACTIONS (4)
  - Extremity necrosis [Not Recovered/Not Resolved]
  - Petechiae [Not Recovered/Not Resolved]
  - Purpura [Not Recovered/Not Resolved]
  - Erythema [Not Recovered/Not Resolved]

NARRATIVE: CASE EVENT DATE: 2015
